FAERS Safety Report 13984420 (Version 3)
Quarter: 2018Q2

REPORT INFORMATION
  Report Type: Report from Study
  Country: US (occurrence: US)
  Receive Date: 20170918
  Receipt Date: 20180413
  Transmission Date: 20180711
  Serious: Yes (Death, Hospitalization, Other)
  Sender: FDA-Public Use
  Company Number: US-BRISTOL-MYERS SQUIBB COMPANY-BMS-2017-080086

PATIENT
  Age: 9 Year
  Sex: Female
  Weight: 20.7 kg

DRUGS (4)
  1. GANITUMAB [Suspect]
     Active Substance: GANITUMAB
     Indication: PRODUCT USED FOR UNKNOWN INDICATION
     Dosage: 698 MG, UNK
     Route: 042
     Dates: start: 20170814, end: 20170828
  2. DASATINIB. [Suspect]
     Active Substance: DASATINIB
     Indication: EMBRYONAL RHABDOMYOSARCOMA
     Dosage: 50 MG, QD
     Route: 048
     Dates: start: 20170710
  3. DASATINIB. [Suspect]
     Active Substance: DASATINIB
     Indication: PRODUCT USED FOR UNKNOWN INDICATION
     Dosage: 850 MG, UNK
     Route: 048
     Dates: start: 20170814, end: 20170831
  4. GANITUMAB [Suspect]
     Active Substance: GANITUMAB
     Indication: EMBRYONAL RHABDOMYOSARCOMA
     Dosage: 351 MG, UNK
     Route: 042
     Dates: start: 20170717

REACTIONS (5)
  - Hypocalcaemia [Recovered/Resolved]
  - Respiratory failure [Fatal]
  - Malignant neoplasm progression [Unknown]
  - Pyrexia [Recovering/Resolving]
  - Hypokalaemia [Recovered/Resolved]

NARRATIVE: CASE EVENT DATE: 20170713
